FAERS Safety Report 4927464-9 (Version None)
Quarter: 2006Q1

REPORT INFORMATION
  Report Type: 
  Country: None (occurrence: None)
  Receive Date: 20060228
  Receipt Date: 20050308
  Transmission Date: 20060701
  Serious: Yes (Hospitalization, Disabling, Other)
  Sender: FDA-Public Use
  Company Number: US-MERCK-0503USA01414

PATIENT
  Age: 42 Year
  Sex: Female
  Weight: 89 kg

DRUGS (2)
  1. VIOXX [Suspect]
     Indication: ARTHRITIS
     Route: 048
  2. VIOXX [Suspect]
     Indication: PAIN
     Route: 048

REACTIONS (11)
  - ABDOMINAL PAIN [None]
  - ADVERSE EVENT [None]
  - ANXIETY DISORDER [None]
  - BIPOLAR DISORDER [None]
  - CARDIOVASCULAR DISORDER [None]
  - CEREBROVASCULAR ACCIDENT [None]
  - DEPRESSION [None]
  - DIZZINESS [None]
  - FIBROMYALGIA [None]
  - OVERDOSE [None]
  - PAIN [None]
